FAERS Safety Report 9352748 (Version 2)
Quarter: 2013Q2

REPORT INFORMATION
  Report Type: Spontaneous
  Country: US (occurrence: US)
  Receive Date: 20130618
  Receipt Date: 20130621
  Transmission Date: 20140414
  Serious: Yes (Hospitalization)
  Sender: FDA-Public Use
  Company Number: US-ROCHE-1237794

PATIENT
  Age: 62 Year
  Sex: Female
  Weight: 80.81 kg

DRUGS (17)
  1. XOLAIR [Suspect]
     Indication: ASTHMA
     Route: 058
     Dates: start: 20120829
  2. FLUTICASONE PROPIONATE [Concomitant]
     Dosage: 0.05 MG/INCH SPRAY
     Route: 065
  3. OMEPRAZOLE [Concomitant]
     Indication: GASTROOESOPHAGEAL REFLUX DISEASE
     Route: 048
  4. ADVAIR [Concomitant]
     Indication: ASTHMA
     Dosage: 50 MCG POWDER 1 PUFF 2 TIMES A DAY
     Route: 048
  5. VENTOLIN [Concomitant]
     Indication: ASTHMA
     Dosage: HFA CFC FREE 90 MCG/INCH AEROSOL WITH ADAPTER 2 PUFFS
     Route: 055
  6. ZYRTEC [Concomitant]
     Indication: RHINITIS ALLERGIC
     Route: 065
  7. FLONASE [Concomitant]
     Indication: RHINITIS ALLERGIC
     Route: 065
  8. QUINAPRIL [Concomitant]
     Indication: HYPERTENSION
     Route: 048
  9. NORVASC [Concomitant]
     Indication: HYPERTENSION
     Route: 065
  10. EPIPEN [Concomitant]
     Dosage: 0.3 MG ONCE
     Route: 065
  11. TRIAMCINOLONE ACETONIDE [Concomitant]
     Route: 065
  12. PREDNISONE [Concomitant]
     Route: 065
  13. CETIRIZINE HYDROCHLORIDE [Concomitant]
     Route: 065
  14. SITAFLOXACIN [Concomitant]
     Route: 065
  15. AMLODIPINE [Concomitant]
     Indication: HYPERTENSION
     Route: 048
  16. LIPITOR [Concomitant]
     Indication: HYPERLIPIDAEMIA
     Route: 048
  17. ECOTRIN [Concomitant]
     Route: 048

REACTIONS (1)
  - Transient ischaemic attack [Recovered/Resolved with Sequelae]
